FAERS Safety Report 17098662 (Version 5)
Quarter: 2020Q4

REPORT INFORMATION
  Report Type: Report from Study
  Country: GB (occurrence: GB)
  Receive Date: 20191202
  Receipt Date: 20201119
  Transmission Date: 20210113
  Serious: Yes (Hospitalization)
  Sender: FDA-Public Use
  Company Number: GB-CELGENEUS-GBR-20191109678

PATIENT
  Age: 59 Year
  Sex: Male
  Weight: 78.6 kg

DRUGS (14)
  1. 5 FU [Suspect]
     Active Substance: FLUOROURACIL
     Dosage: CUMULATIVE DOSE PRIOR TO THE EVENT 12900MG
     Route: 041
     Dates: start: 20191114, end: 20191116
  2. ELOXATIN [Suspect]
     Active Substance: OXALIPLATIN
     Indication: PANCREATIC CARCINOMA METASTATIC
     Dosage: CUMULATIVE DOSE PRIOR TO THE EVENT 430MG
     Route: 041
     Dates: start: 20190919
  3. 5 FU [Suspect]
     Active Substance: FLUOROURACIL
     Indication: PANCREATIC CARCINOMA METASTATIC
     Dosage: CUMULATIVE DOSE PRIOR TO THE EVENT 12900MG
     Route: 041
     Dates: start: 20190919
  4. CREON [Concomitant]
     Active Substance: PANCRELIPASE AMYLASE\PANCRELIPASE LIPASE\PANCRELIPASE PROTEASE
     Indication: ENZYME SUPPLEMENTATION
     Route: 048
     Dates: start: 20190807
  5. NOVORAPID [Suspect]
     Active Substance: INSULIN ASPART
     Indication: DIABETES MELLITUS
     Dosage: 100 UNITS/ML 0-6 UNITS
     Route: 058
     Dates: start: 20191017
  6. PARACETAMOL [Concomitant]
     Active Substance: ACETAMINOPHEN
     Indication: PAIN
     Route: 048
     Dates: start: 20190911
  7. METFORMIN [Suspect]
     Active Substance: METFORMIN HYDROCHLORIDE
     Indication: DIABETES MELLITUS
     Dosage: 2 GRAM
     Route: 048
     Dates: start: 1997
  8. ATORVASTATIN [Concomitant]
     Active Substance: ATORVASTATIN
     Indication: PROPHYLAXIS
     Route: 048
     Dates: start: 2015
  9. MELOXICAM. [Concomitant]
     Active Substance: MELOXICAM
     Indication: PSORIATIC ARTHROPATHY
     Route: 048
     Dates: start: 201903
  10. LANSOPRAZOLE. [Concomitant]
     Active Substance: LANSOPRAZOLE
     Indication: GASTROOESOPHAGEAL REFLUX DISEASE
     Route: 048
     Dates: start: 1997
  11. ABRAXANE [Suspect]
     Active Substance: PACLITAXEL
     Indication: PANCREATIC CARCINOMA METASTATIC
     Dosage: CUMULATIVE DOSE PRIOR TO THE EVENT 780MG
     Route: 041
     Dates: start: 20190919
  12. FOLINIC ACID [Suspect]
     Active Substance: LEUCOVORIN
     Indication: PANCREATIC CARCINOMA METASTATIC
     Dosage: CUMULATIVE DOSE PRIOR TO THE EVENT 1050MG
     Route: 041
     Dates: start: 20190919
  13. LANTUS [Suspect]
     Active Substance: INSULIN GLARGINE
     Indication: DIABETES MELLITUS
     Dosage: 14 IU (INTERNATIONAL UNIT)
     Route: 058
     Dates: start: 1994
  14. FERROUS SULFATE. [Concomitant]
     Active Substance: FERROUS SULFATE
     Indication: BLOOD IRON DECREASED
     Route: 048
     Dates: start: 201903

REACTIONS (3)
  - Hyperglycaemia [Recovered/Resolved]
  - Lethargy [Recovered/Resolved]
  - Cancer pain [Recovered/Resolved with Sequelae]

NARRATIVE: CASE EVENT DATE: 20191119
